FAERS Safety Report 9528203 (Version 5)
Quarter: 2013Q4

REPORT INFORMATION
  Report Type: Spontaneous
  Country: GB (occurrence: GB)
  Receive Date: 20130917
  Receipt Date: 20131028
  Transmission Date: 20140711
  Serious: Yes (Other)
  Sender: FDA-Public Use
  Company Number: PHFR2013GB005249

PATIENT
  Sex: Female

DRUGS (4)
  1. CLOZARIL [Suspect]
     Indication: SCHIZOPHRENIA
     Dosage: UNK UKN, UNK
     Route: 048
     Dates: start: 20130910
  2. CLOZARIL [Suspect]
     Dosage: 25 MG, DAILY
     Route: 048
  3. AMISULPRIDE [Concomitant]
     Indication: SCHIZOPHRENIA
     Dosage: 300 MG, DAILY
     Route: 048
  4. PROPYLTHIOURACIL [Concomitant]
     Dosage: UNK UKN, UNK

REACTIONS (3)
  - Basedow^s disease [Recovering/Resolving]
  - Tachycardia [Recovering/Resolving]
  - Headache [Recovered/Resolved]
